FAERS Safety Report 6061360-1 (Version None)
Quarter: 2009Q1

REPORT INFORMATION
  Report Type: 
  Country: None (occurrence: None)
  Receive Date: 20090129
  Receipt Date: 20090129
  Transmission Date: 20090719
  Serious: Yes (Hospitalization)
  Sender: FDA-Public Use
  Company Number: None

PATIENT
  Sex: Male
  Weight: 76 kg

DRUGS (8)
  1. SUNITINIB [Suspect]
     Indication: RENAL CANCER METASTATIC
     Dosage: 50 MG DAILY ORAL
     Route: 048
     Dates: start: 20081014
  2. LIPITOR [Concomitant]
  3. ZESTRIL [Concomitant]
  4. REGLAN [Concomitant]
  5. PERCOCET [Concomitant]
  6. COMPAZINE [Concomitant]
  7. KYTRIL [Concomitant]
  8. PROTONIX [Concomitant]

REACTIONS (1)
  - CANCER PAIN [None]
